FAERS Safety Report 10696892 (Version 1)
Quarter: 2015Q1

REPORT INFORMATION
  Report Type: Report from Study
  Country: CN (occurrence: CN)
  Receive Date: 20150108
  Receipt Date: 20150108
  Transmission Date: 20150721
  Serious: Yes (Death, Other)
  Sender: FDA-Public Use
  Company Number: CN-ROCHE-1517052

PATIENT

DRUGS (2)
  1. CISPLATIN. [Suspect]
     Active Substance: CISPLATIN
     Indication: NASOPHARYNGEAL CANCER
     Route: 042
  2. CAPECITABINE. [Suspect]
     Active Substance: CAPECITABINE
     Indication: NASOPHARYNGEAL CANCER
     Dosage: FOR 14 DAYS PER CYCLE
     Route: 048

REACTIONS (20)
  - Dehydration [Unknown]
  - Thrombocytopenia [Unknown]
  - Weight decreased [Unknown]
  - Anaemia [Unknown]
  - Vomiting [Unknown]
  - Osteonecrosis [Unknown]
  - Death [Fatal]
  - Dysphagia [Unknown]
  - Cranial nerve disorder [Unknown]
  - Hearing impaired [Unknown]
  - Ear infection [Unknown]
  - Renal impairment [Unknown]
  - Neuropathy peripheral [Unknown]
  - Central nervous system necrosis [Unknown]
  - Soft tissue necrosis [Unknown]
  - Gastrointestinal disorder [Unknown]
  - Electrolyte imbalance [Unknown]
  - Infection [Unknown]
  - Brain injury [Unknown]
  - Neutropenia [Unknown]
